FAERS Safety Report 18393264 (Version 2)
Quarter: 2020Q4

REPORT INFORMATION
  Report Type: Spontaneous
  Country: IL (occurrence: IL)
  Receive Date: 20201016
  Receipt Date: 20201019
  Transmission Date: 20210114
  Serious: Yes (Hospitalization)
  Sender: FDA-Public Use
  Company Number: IL-009507513-2009ISR005458

PATIENT
  Age: 76 Year
  Sex: Male

DRUGS (1)
  1. JANUVIA [Suspect]
     Active Substance: SITAGLIPTIN PHOSPHATE
     Indication: TYPE 2 DIABETES MELLITUS
     Dosage: 25 MILLIGRAM, UNK
     Route: 048
     Dates: start: 20200613, end: 202009

REACTIONS (4)
  - Blood glucose increased [Unknown]
  - Adverse event [Unknown]
  - Drug ineffective [Unknown]
  - Drug effect less than expected [Unknown]

NARRATIVE: CASE EVENT DATE: 2020
